FAERS Safety Report 9037525 (Version 3)
Quarter: 2013Q3

REPORT INFORMATION
  Report Type: Spontaneous
  Country: TR (occurrence: TR)
  Receive Date: 20130129
  Receipt Date: 20130930
  Transmission Date: 20140515
  Serious: Yes (Hospitalization, Other)
  Sender: FDA-Public Use
  Company Number: TR-RANBAXY-2013RR-64320

PATIENT
  Age: 42 Year
  Sex: Male

DRUGS (2)
  1. PROZAC [Suspect]
     Indication: AFFECTIVE DISORDER
     Dosage: 40 MG/DAY
     Route: 048
  2. SEROQUEL [Suspect]
     Indication: AFFECTIVE DISORDER
     Dosage: 1000 MG/DAY
     Route: 048

REACTIONS (2)
  - Serotonin syndrome [Recovered/Resolved]
  - Herbal interaction [Recovered/Resolved]
